FAERS Safety Report 4370824-8 (Version None)
Quarter: 2004Q2

REPORT INFORMATION
  Report Type: 
  Country: None (occurrence: None)
  Receive Date: 20040601
  Receipt Date: 20040517
  Transmission Date: 20050107
  Serious: Yes (Death)
  Sender: FDA-Public Use
  Company Number: 04P-066-0261052-00

PATIENT
  Age: 25 Year
  Sex: Female

DRUGS (1)
  1. MERIDIA [Suspect]
     Indication: OBESITY

REACTIONS (2)
  - ACUTE PULMONARY OEDEMA [None]
  - LUNG INFECTION [None]
